FAERS Safety Report 12383814 (Version 3)
Quarter: 2016Q2

REPORT INFORMATION
  Report Type: Spontaneous
  Country: IT (occurrence: IT)
  Receive Date: 20160519
  Receipt Date: 20160622
  Transmission Date: 20160815
  Serious: Yes (Other)
  Sender: FDA-Public Use
  Company Number: IT-ALEXION PHARMACEUTICALS INC-A201603507

PATIENT
  Age: 50 Year
  Sex: Male

DRUGS (3)
  1. SOLIRIS [Suspect]
     Active Substance: ECULIZUMAB
     Indication: PAROXYSMAL NOCTURNAL HAEMOGLOBINURIA
     Dosage: 600 MG, QW, FOR 4 CONSECUTIVE DOSES
     Route: 042
     Dates: start: 20130311
  2. SOLIRIS [Suspect]
     Active Substance: ECULIZUMAB
     Dosage: 900 MG, Q2W
     Route: 042
     Dates: start: 20130420
  3. SOLIRIS [Suspect]
     Active Substance: ECULIZUMAB
     Dosage: 900 MG, AFTER 7 DAYS FROM THE 4TH DOSE
     Route: 042

REACTIONS (2)
  - Neutropenia [Recovering/Resolving]
  - Epstein-Barr virus antibody positive [Recovering/Resolving]

NARRATIVE: CASE EVENT DATE: 20160502
